FAERS Safety Report 7874807-2 (Version None)
Quarter: 2011Q4

REPORT INFORMATION
  Report Type: 
  Country: None (occurrence: None)
  Receive Date: 20111031
  Receipt Date: 20111025
  Transmission Date: 20120403
  Serious: Yes (Other)
  Sender: FDA-Public Use
  Company Number: TW-JNJFOC-20111011792

PATIENT
  Sex: Male

DRUGS (7)
  1. ULTRACET [Suspect]
     Indication: ANALGESIC THERAPY
     Route: 048
  2. MAGNESIUM OXIDE [Concomitant]
     Indication: PRODUCT USED FOR UNKNOWN INDICATION
  3. BROMOPRIDE [Concomitant]
     Indication: PRODUCT USED FOR UNKNOWN INDICATION
  4. GASCON [Concomitant]
     Indication: PRODUCT USED FOR UNKNOWN INDICATION
  5. XYZAL [Concomitant]
     Indication: PRODUCT USED FOR UNKNOWN INDICATION
  6. HARNALIDGE [Concomitant]
     Indication: PRODUCT USED FOR UNKNOWN INDICATION
  7. PROSCAR [Concomitant]
     Indication: PRODUCT USED FOR UNKNOWN INDICATION

REACTIONS (2)
  - SKIN ULCER [None]
  - PRURITUS [None]
